FAERS Safety Report 16266123 (Version 1)
Quarter: 2019Q2

REPORT INFORMATION
  Report Type: Spontaneous
  Country: FR (occurrence: FR)
  Receive Date: 20190502
  Receipt Date: 20190502
  Transmission Date: 20190711
  Serious: Yes (Hospitalization, Other)
  Sender: FDA-Public Use
  Company Number: FR-GLAXOSMITHKLINE-FR2019AMR070854

PATIENT
  Age: 6 Day
  Sex: Male

DRUGS (6)
  1. CAFFEINE CITRATE. [Suspect]
     Active Substance: CAFFEINE CITRATE
     Indication: PROPHYLAXIS
     Dosage: 4.4 MG, QD
     Route: 042
     Dates: start: 20181013
  2. ACYCLOVIR. [Suspect]
     Active Substance: ACYCLOVIR
     Indication: ANTIVIRAL PROPHYLAXIS
     Dosage: 33 MG, QD
     Route: 042
     Dates: start: 20181013, end: 20181020
  3. VITAMIN K1 [Concomitant]
     Active Substance: PHYTONADIONE
     Indication: PRODUCT USED FOR UNKNOWN INDICATION
     Dosage: UNK
     Dates: start: 20181013, end: 20181016
  4. AMIKACINE [Suspect]
     Active Substance: AMIKACIN
     Indication: ANTIBIOTIC PROPHYLAXIS
     Dosage: 33 MG, QD
     Route: 042
     Dates: start: 20181013, end: 20181020
  5. PARACETAMOL [Concomitant]
     Active Substance: ACETAMINOPHEN
     Indication: PRODUCT USED FOR UNKNOWN INDICATION
     Dosage: 10 MG/ML, UNK
     Dates: start: 20181013
  6. UVESTEROL ADEC [Concomitant]
     Indication: PRODUCT USED FOR UNKNOWN INDICATION
     Dosage: UNK
     Dates: start: 20181013

REACTIONS (1)
  - Necrotising colitis [Recovered/Resolved with Sequelae]

NARRATIVE: CASE EVENT DATE: 20181019
